FAERS Safety Report 24045964 (Version 1)
Quarter: 2024Q3

REPORT INFORMATION
  Report Type: Spontaneous
  Country: US (occurrence: None)
  Receive Date: 20240702
  Receipt Date: 20240702
  Transmission Date: 20241016
  Serious: Yes (Hospitalization, Other)
  Sender: Public
  Company Number: None

PATIENT

DRUGS (1)
  1. OZEMPIC [Suspect]
     Active Substance: SEMAGLUTIDE

REACTIONS (8)
  - Eating disorder [None]
  - Weight decreased [None]
  - Blood pressure decreased [None]
  - Jaundice [None]
  - Ear disorder [None]
  - Cholelithiasis [None]
  - Fall [None]
  - Mobility decreased [None]
